FAERS Safety Report 11272609 (Version 2)
Quarter: 2017Q3

REPORT INFORMATION
  Report Type: Report from Study
  Country: US (occurrence: US)
  Receive Date: 20150715
  Receipt Date: 20170907
  Transmission Date: 20171127
  Serious: Yes (Other)
  Sender: FDA-Public Use
  Company Number: US-BAXALTA-2015BLT000376

PATIENT
  Age: 63 Year
  Sex: Female

DRUGS (2)
  1. HUMAN NORMAL IMMUNOGLOBULIN; LIQUID [Suspect]
     Active Substance: HUMAN IMMUNOGLOBULIN G
     Indication: PRIMARY IMMUNODEFICIENCY SYNDROME
     Dosage: 12.5 UNK, 4X A MONTH
     Route: 042
     Dates: end: 2015
  2. HUMAN NORMAL IMMUNOGLOBULIN; LIQUID [Suspect]
     Active Substance: HUMAN IMMUNOGLOBULIN G
     Dosage: 12.5 UNK, 4 X A MONTH
     Route: 058
     Dates: start: 2015

REACTIONS (3)
  - Lower limb fracture [Not Recovered/Not Resolved]
  - Small fibre neuropathy [Unknown]
  - Fall [Unknown]

NARRATIVE: CASE EVENT DATE: 201411
